FAERS Safety Report 5567713-X (Version None)
Quarter: 2007Q4

REPORT INFORMATION
  Report Type: 
  Country: None (occurrence: None)
  Receive Date: 20071217
  Receipt Date: 20071206
  Transmission Date: 20080405
  Serious: Yes (Hospitalization)
  Sender: FDA-Public Use
  Company Number: WAES 0711USA00326

PATIENT
  Age: 59 Year
  Sex: Male
  Weight: 88.905 kg

DRUGS (6)
  1. JANUVIA [Suspect]
     Dosage: 100 MG/DAILY/PO
     Route: 048
     Dates: start: 20070611, end: 20071024
  2. JANUVIA [Suspect]
     Dosage: 100 MG/DAILY/PO
     Route: 048
     Dates: start: 20071101, end: 20071104
  3. PLACEBO [Suspect]
     Dates: start: 20070525, end: 20070610
  4. HUMULIN R [Concomitant]
  5. LISINOPRIL [Concomitant]
  6. PRAASTATIN SODIUM [Concomitant]

REACTIONS (14)
  - BALANOPOSTHITIS [None]
  - BLOOD GLUCOSE INCREASED [None]
  - CULTURE URINE POSITIVE [None]
  - HYPERSENSITIVITY [None]
  - LEUKOCYTOCLASTIC VASCULITIS [None]
  - PENILE ABSCESS [None]
  - PENILE INFECTION [None]
  - PENILE NECROSIS [None]
  - PYREXIA [None]
  - SCROTAL SWELLING [None]
  - STAPHYLOCOCCAL INFECTION [None]
  - TESTICULAR RETRACTION [None]
  - TINEA CRURIS [None]
  - URTICARIA [None]
